FAERS Safety Report 15764941 (Version 2)
Quarter: 2019Q1

REPORT INFORMATION
  Report Type: Spontaneous
  Country: BE (occurrence: BE)
  Receive Date: 20181227
  Receipt Date: 20190110
  Transmission Date: 20190417
  Serious: Yes (Other)
  Sender: FDA-Public Use
  Company Number: PHHY2018BE196299

PATIENT
  Sex: Male

DRUGS (1)
  1. VOTRIENT [Suspect]
     Active Substance: PAZOPANIB HYDROCHLORIDE
     Indication: RENAL CANCER METASTATIC
     Dosage: UNK
     Route: 065
     Dates: start: 20180824, end: 20180920

REACTIONS (6)
  - Hepatic function abnormal [Recovered/Resolved]
  - Dysgeusia [Recovered/Resolved]
  - Alopecia [Not Recovered/Not Resolved]
  - Blood creatinine increased [Unknown]
  - Lymphopenia [Not Recovered/Not Resolved]
  - Dysphonia [Recovered/Resolved]

NARRATIVE: CASE EVENT DATE: 201809
